FAERS Safety Report 9384966 (Version 1)
Quarter: 2013Q3

REPORT INFORMATION
  Report Type: Spontaneous
  Country: US (occurrence: US)
  Receive Date: 20130705
  Receipt Date: 20130705
  Transmission Date: 20140515
  Serious: No
  Sender: FDA-Public Use
  Company Number: US-GLAXOSMITHKLINE-A1019622A

PATIENT
  Age: 56 Year
  Sex: Female

DRUGS (5)
  1. BENLYSTA [Suspect]
     Indication: SYSTEMIC LUPUS ERYTHEMATOSUS
     Dosage: 400MG EVERY TWO WEEKS
     Route: 042
     Dates: start: 20130314
  2. PLAQUENIL [Concomitant]
  3. CELEBREX [Concomitant]
  4. METHOTREXATE [Concomitant]
  5. IMURAN [Concomitant]

REACTIONS (5)
  - Nausea [Recovered/Resolved]
  - Abdominal pain upper [Unknown]
  - Myalgia [Unknown]
  - Myalgia [Unknown]
  - Feeling abnormal [Unknown]
